FAERS Safety Report 9272253 (Version 1)
Quarter: 2013Q2

REPORT INFORMATION
  Report Type: Spontaneous
  Country: DE (occurrence: DE)
  Receive Date: 20130506
  Receipt Date: 20130506
  Transmission Date: 20140414
  Serious: Yes (Other)
  Sender: FDA-Public Use
  Company Number: GXKR2013DE001704

PATIENT
  Sex: Female

DRUGS (1)
  1. PENHEXAL MEGA [Suspect]
     Route: 048

REACTIONS (1)
  - Diarrhoea haemorrhagic [Unknown]
